FAERS Safety Report 19776960 (Version 1)
Quarter: 2021Q3

REPORT INFORMATION
  Report Type: Spontaneous
  Country: CA (occurrence: CA)
  Receive Date: 20210901
  Receipt Date: 20210901
  Transmission Date: 20211014
  Serious: Yes (Other)
  Sender: FDA-Public Use
  Company Number: CA-CELGENEUS-CAN-20210805746

PATIENT
  Age: 30 Year
  Sex: Male

DRUGS (1)
  1. AZACITIDINE ORAL (CC?486) [Suspect]
     Active Substance: AZACITIDINE
     Indication: ACUTE MYELOID LEUKAEMIA
     Dosage: 300 MILLIGRAM
     Route: 048
     Dates: start: 20210331

REACTIONS (2)
  - Laboratory test abnormal [Unknown]
  - Asthenia [Unknown]

NARRATIVE: CASE EVENT DATE: 20210811
